FAERS Safety Report 15392657 (Version 1)
Quarter: 2018Q3

REPORT INFORMATION
  Report Type: Spontaneous
  Country: US (occurrence: US)
  Receive Date: 20180917
  Receipt Date: 20180917
  Transmission Date: 20181010
  Serious: No
  Sender: FDA-Public Use
  Company Number: US-BIOMARINAP-US-2018-119834

PATIENT
  Age: 4 Year
  Sex: Male
  Weight: 20.1 kg

DRUGS (1)
  1. KUVAN [Suspect]
     Active Substance: SAPROPTERIN DIHYDROCHLORIDE
     Indication: PRODUCT USED FOR UNKNOWN INDICATION
     Dosage: 20 MILLIGRAM/KILOGRAM, QD
     Route: 048
     Dates: start: 20180815, end: 20180831

REACTIONS (2)
  - Patient uncooperative [Unknown]
  - Anger [Unknown]

NARRATIVE: CASE EVENT DATE: 20180817
